FAERS Safety Report 20977659 (Version 2)
Quarter: 2022Q3

REPORT INFORMATION
  Report Type: Spontaneous
  Country: US (occurrence: US)
  Receive Date: 20220618
  Receipt Date: 20220809
  Transmission Date: 20221027
  Serious: No
  Sender: FDA-Public Use
  Company Number: US-UNITED THERAPEUTICS-UNT-2022-012988

PATIENT
  Sex: Female

DRUGS (2)
  1. REMODULIN [Suspect]
     Active Substance: TREPROSTINIL
     Indication: Pulmonary arterial hypertension
     Dosage: UNK, CONTINUING
     Route: 058
     Dates: start: 20201224
  2. REMODULIN [Suspect]
     Active Substance: TREPROSTINIL
     Dosage: 0.0202 ?G/KG, CONTINUING
     Route: 058

REACTIONS (1)
  - COVID-19 [Recovering/Resolving]
